FAERS Safety Report 7152646-8 (Version None)
Quarter: 2010Q4

REPORT INFORMATION
  Report Type: 
  Country: None (occurrence: None)
  Receive Date: 20101213
  Receipt Date: 20101202
  Transmission Date: 20110411
  Serious: Yes (Hospitalization)
  Sender: FDA-Public Use
  Company Number: US-JNJFOC-20101202090

PATIENT
  Age: 2 Year
  Sex: Female
  Weight: 10.89 kg

DRUGS (7)
  1. CHILDREN'S TYLENOL SUSPENSION [Suspect]
     Indication: PYREXIA
     Route: 048
  2. CHILDREN'S TYLENOL SUSPENSION [Suspect]
     Indication: SINUSITIS
     Route: 048
  3. CONCENTRATED TYLENOL INFANT DROPS [Suspect]
     Indication: PYREXIA
     Route: 048
  4. CONCENTRATED TYLENOL INFANT DROPS [Suspect]
     Indication: SINUSITIS
     Route: 048
  5. JUNIOR STRENGTH MOTRIN [Suspect]
     Indication: PYREXIA
     Route: 048
  6. JUNIOR STRENGTH MOTRIN [Suspect]
     Indication: SINUSITIS
     Route: 048
  7. BENADRYL [Suspect]
     Indication: PRODUCT USED FOR UNKNOWN INDICATION
     Route: 048

REACTIONS (2)
  - INFECTION [None]
  - PRODUCT QUALITY ISSUE [None]
